FAERS Safety Report 4292682-2 (Version None)
Quarter: 2004Q1

REPORT INFORMATION
  Report Type: 
  Country: None (occurrence: None)
  Receive Date: 20040126
  Receipt Date: 20031008
  Transmission Date: 20041129
  Serious: No
  Sender: FDA-Public Use
  Company Number: USA031049360

PATIENT
  Age: 65 Year
  Sex: Female
  Weight: 41 kg

DRUGS (5)
  1. FORTEO [Suspect]
     Indication: OSTEOPOROSIS
     Dates: start: 20031003
  2. VITAMIN D [Concomitant]
  3. MIACALCIN [Concomitant]
  4. TRICOR [Concomitant]
  5. CALCIUM [Concomitant]

REACTIONS (7)
  - FEELING COLD [None]
  - HEADACHE [None]
  - INFLUENZA LIKE ILLNESS [None]
  - PAIN [None]
  - TREMOR [None]
  - URINARY INCONTINENCE [None]
  - URTICARIA [None]
